FAERS Safety Report 5730329-6 (Version None)
Quarter: 2008Q2

REPORT INFORMATION
  Report Type: 
  Country: None (occurrence: None)
  Receive Date: 20080430
  Receipt Date: 20080121
  Transmission Date: 20081010
  Serious: No
  Sender: FDA-Public Use
  Company Number: 2008PV033983

PATIENT
  Age: 45 Year
  Sex: Male
  Weight: 113.3993 kg

DRUGS (5)
  1. SYMLIN [Suspect]
     Indication: TYPE 2 DIABETES MELLITUS
     Dosage: SC
     Route: 058
  2. EXENATIDE (0.25 MG/ML) [Concomitant]
     Dosage: SC
     Route: 058
  3. CYMBALTA [Concomitant]
  4. LYRICA [Concomitant]
  5. NOVOLOG [Suspect]
     Dosage: SC
     Route: 058

REACTIONS (1)
  - WEIGHT INCREASED [None]
